FAERS Safety Report 5113830-8 (Version None)
Quarter: 2006Q3

REPORT INFORMATION
  Report Type: 
  Country: None (occurrence: None)
  Receive Date: 20060925
  Receipt Date: 20060824
  Transmission Date: 20061208
  Serious: Yes (Other)
  Sender: FDA-Public Use
  Company Number: US-ROCHE-460919

PATIENT
  Age: 71 Year
  Sex: Female
  Weight: 69.3 kg

DRUGS (1)
  1. BONIVA [Suspect]
     Indication: DRUG USE FOR UNKNOWN INDICATION
     Route: 042
     Dates: start: 20060712, end: 20060712

REACTIONS (2)
  - GASTROINTESTINAL HAEMORRHAGE [None]
  - ULCER HAEMORRHAGE [None]
